FAERS Safety Report 6839366-1 (Version None)
Quarter: 2010Q3

REPORT INFORMATION
  Report Type: 
  Country: None (occurrence: None)
  Receive Date: 20100714
  Receipt Date: 20100705
  Transmission Date: 20110219
  Serious: Yes (Other)
  Sender: FDA-Public Use
  Company Number: AU-JNJFOC-20100702385

PATIENT
  Age: 19 Year
  Sex: Female

DRUGS (3)
  1. TOPAMAX [Suspect]
     Indication: PRODUCT USED FOR UNKNOWN INDICATION
     Route: 065
  2. TEGRETOL [Concomitant]
     Route: 065
  3. KEPPRA [Concomitant]
     Route: 065

REACTIONS (3)
  - NAUSEA [None]
  - SUICIDAL IDEATION [None]
  - TREMOR [None]
